FAERS Safety Report 11147549 (Version 1)
Quarter: 2015Q2

REPORT INFORMATION
  Report Type: Report from Study
  Country: BR (occurrence: BR)
  Receive Date: 20150529
  Receipt Date: 20150529
  Transmission Date: 20150821
  Serious: Yes (Other)
  Sender: FDA-Public Use
  Company Number: BR-ROCHE-1528930

PATIENT
  Sex: Male
  Weight: 74 kg

DRUGS (3)
  1. PARACETAMOL [Concomitant]
     Active Substance: ACETAMINOPHEN
     Indication: ARTHRALGIA
  2. MABTHERA [Suspect]
     Active Substance: RITUXIMAB
     Route: 042
     Dates: start: 201408
  3. MABTHERA [Suspect]
     Active Substance: RITUXIMAB
     Indication: RHEUMATOID ARTHRITIS
     Dosage: 2 VIALS OF 1000 MG; ONE APPLICATION OF 1000 MG AND ANOTHER ONE AFTER 14 DAYS.
     Route: 042
     Dates: start: 20140226

REACTIONS (4)
  - Somnolence [Recovered/Resolved]
  - Weight decreased [Unknown]
  - Administration site pain [Unknown]
  - Emotional disorder [Not Recovered/Not Resolved]
